FAERS Safety Report 6001924-4 (Version None)
Quarter: 2008Q4

REPORT INFORMATION
  Report Type: 
  Country: None (occurrence: None)
  Receive Date: 20081215
  Receipt Date: 20071204
  Transmission Date: 20090506
  Serious: No
  Sender: FDA-Public Use
  Company Number: US-AMGEN-KDL254084

PATIENT
  Sex: Female

DRUGS (6)
  1. ENBREL [Suspect]
     Indication: PSORIASIS
     Route: 058
     Dates: start: 20070709
  2. DERMA-SMOOTHE/FS [Concomitant]
     Dates: start: 20070904
  3. DOXAZOSIN MESYLATE [Concomitant]
     Dates: start: 20070904
  4. SPIRONOLACTONE [Concomitant]
  5. FOSINOPRIL SODIUM [Concomitant]
  6. BETAMETHASONE [Concomitant]

REACTIONS (5)
  - DYSURIA [None]
  - HEADACHE [None]
  - INJECTION SITE REACTION [None]
  - MICTURITION URGENCY [None]
  - POLLAKIURIA [None]
